FAERS Safety Report 17493854 (Version 3)
Quarter: 2020Q1

REPORT INFORMATION
  Report Type: Spontaneous
  Country: RU (occurrence: RU)
  Receive Date: 20200304
  Receipt Date: 20200331
  Transmission Date: 20200409
  Serious: Yes (Hospitalization, Other)
  Sender: FDA-Public Use
  Company Number: RU-SA-2020SA053724

PATIENT
  Age: 63 Year
  Sex: Female

DRUGS (1)
  1. KEVZARA [Suspect]
     Active Substance: SARILUMAB
     Indication: RHEUMATOID ARTHRITIS
     Dosage: 400 MG
     Dates: start: 202002

REACTIONS (8)
  - Loss of consciousness [Unknown]
  - Joint swelling [Unknown]
  - Pyrexia [Unknown]
  - Oedema peripheral [Unknown]
  - Osteitis [Unknown]
  - Epilepsy [Unknown]
  - Sepsis [Unknown]
  - C-reactive protein increased [Unknown]

NARRATIVE: CASE EVENT DATE: 20200224
